FAERS Safety Report 6430339-X (Version None)
Quarter: 2009Q4

REPORT INFORMATION
  Report Type: 
  Country: None (occurrence: None)
  Receive Date: 20091106
  Receipt Date: 20091028
  Transmission Date: 20100525
  Serious: Yes (Hospitalization)
  Sender: FDA-Public Use
  Company Number: US-ABBOTT-09P-163-0605656-00

PATIENT
  Sex: Male
  Weight: 63.56 kg

DRUGS (5)
  1. DEPAKENE [Suspect]
     Indication: ANGER
     Dosage: 250 MG/5ML 3 TSP AM AND 4 TSP AT HS
     Route: 048
     Dates: start: 20090501
  2. DEPAKENE [Suspect]
     Indication: FOETAL ALCOHOL SYNDROME
  3. DEPAKENE [Suspect]
     Indication: ABNORMAL BEHAVIOUR
  4. SEROQUEL XR [Concomitant]
     Indication: FOETAL ALCOHOL SYNDROME
     Route: 048
  5. CITALOPRAM HYDROBROMIDE [Concomitant]
     Indication: FOETAL ALCOHOL SYNDROME
     Route: 048

REACTIONS (2)
  - ABNORMAL BEHAVIOUR [None]
  - ANGER [None]
